FAERS Safety Report 11591862 (Version 2)
Quarter: 2015Q4

REPORT INFORMATION
  Report Type: Report from Study
  Country: FR (occurrence: US)
  Receive Date: 20151005
  Receipt Date: 20151103
  Transmission Date: 20160304
  Serious: Yes (Other)
  Sender: FDA-Public Use
  Company Number: FR-009507513-1510USA000640

PATIENT

DRUGS (5)
  1. HEXADROL [Suspect]
     Active Substance: DEXAMETHASONE
     Indication: PLASMA CELL MYELOMA
     Dosage: 20 MG, DAY1,4,5,8,9,11,12 IN CYCLE 1-8 (21D)
     Route: 048
  2. BORTEZOMIB [Concomitant]
     Active Substance: BORTEZOMIB
     Dosage: 1.3 MG/M2 ON DAY 1, 4, 8, 11 IN CYCLE 1-8 (21D)
     Route: 058
  3. HEXADROL [Suspect]
     Active Substance: DEXAMETHASONE
     Dosage: 20 MG, DAY 1, 8, 15, 22 IN CYCLE 9-11 (35D)
  4. BORTEZOMIB [Concomitant]
     Active Substance: BORTEZOMIB
     Dosage: 1.3 MG/M2 ON DAY 1, 8, 15, 22 IN CYCLE 9-11 (35D)
     Route: 058
  5. VENETOCLAX [Concomitant]
     Active Substance: VENETOCLAX
     Indication: PLASMA CELL MYELOMA
     Dosage: 50-500 MG DAILY
     Route: 048

REACTIONS (1)
  - Cardiac failure [Unknown]
